FAERS Safety Report 10271937 (Version 1)
Quarter: 2014Q3

REPORT INFORMATION
  Report Type: Spontaneous
  Country: BE (occurrence: BE)
  Receive Date: 20140702
  Receipt Date: 20140702
  Transmission Date: 20150326
  Serious: Yes (Hospitalization, Other)
  Sender: FDA-Public Use
  Company Number: PHHY2014BE079788

PATIENT
  Age: 61 Year
  Sex: Female

DRUGS (9)
  1. SERTRALINE EG [Concomitant]
     Active Substance: SERTRALINE HYDROCHLORIDE
     Dosage: 100 MG, UNK
  2. DICLOFENAC [Suspect]
     Active Substance: DICLOFENAC
     Indication: PROCEDURAL PAIN
     Dosage: 75 MG, UNK
  3. TEMESTA [Concomitant]
     Active Substance: LORAZEPAM
     Dosage: 2.5 MG, UNK
  4. TRAZODONE [Concomitant]
     Active Substance: TRAZODONE HYDROCHLORIDE
     Dosage: 100 MG, UNK
  5. FENOGAL LIDOSE [Concomitant]
     Dosage: 267 MG, UNK
  6. ZYPREXA [Concomitant]
     Active Substance: OLANZAPINE
     Dosage: 2.5 MG, UNK
  7. IBUPROFEN. [Interacting]
     Active Substance: IBUPROFEN
     Indication: PROCEDURAL PAIN
  8. M ANIPREX [Interacting]
     Active Substance: LITHIUM CARBONATE
     Indication: BIPOLAR DISORDER
     Dosage: 250 MG, TID
  9. NOVOMIX [Concomitant]
     Active Substance: INSULIN ASPART

REACTIONS (12)
  - Toxicity to various agents [Recovering/Resolving]
  - Loss of consciousness [Recovered/Resolved]
  - Renal failure acute [Recovered/Resolved]
  - Coma [Recovering/Resolving]
  - Dehydration [Recovering/Resolving]
  - Restlessness [Recovering/Resolving]
  - Hypercalcaemia [Recovering/Resolving]
  - Haemoglobin decreased [Recovered/Resolved]
  - Drug interaction [Unknown]
  - Hypoglycaemia [Recovered/Resolved]
  - Diabetes mellitus [Recovering/Resolving]
  - Hyperglycaemia [Recovering/Resolving]
